FAERS Safety Report 23673376 (Version 1)
Quarter: 2024Q1

REPORT INFORMATION
  Report Type: Spontaneous
  Country: IT (occurrence: IT)
  Receive Date: 20240326
  Receipt Date: 20240326
  Transmission Date: 20240410
  Serious: Yes (Hospitalization)
  Sender: FDA-Public Use
  Company Number: None

PATIENT
  Age: 27 Year
  Sex: Female

DRUGS (2)
  1. FLUMAZENIL [Suspect]
     Active Substance: FLUMAZENIL
     Indication: Reversal of sedation
     Dosage: 0,1 MG/ML?FORM OF ADMIN: SOLUTION FOR INJECTION/INFUSION?ROUTE OF ADMIN: INTRAVENOUS (NOT OTHERWISE
     Dates: start: 20240227, end: 20240227
  2. MIDAZOLAM [Suspect]
     Active Substance: MIDAZOLAM
     Indication: Sedation
     Dosage: 5 MG/ML?FOA: SOLUTION FOR INJECTION/INFUSION?ROA: INTRAVENOUS
     Dates: start: 20240227, end: 20240227

REACTIONS (3)
  - Drug hypersensitivity [Recovered/Resolved]
  - Pruritus [Recovered/Resolved]
  - Erythema [Recovered/Resolved]

NARRATIVE: CASE EVENT DATE: 20240227
